FAERS Safety Report 9294256 (Version 1)
Quarter: 2013Q1

REPORT INFORMATION
  Report Type: Spontaneous
  Country: US (occurrence: None)
  Receive Date: 20121227
  Receipt Date: 20121227
  Transmission Date: 20140127
  Serious: Yes (Hospitalization)
  Sender: FDA-Public Use
  Company Number: PHEH2012US015967

PATIENT
  Age: 63 Year
  Sex: Female

DRUGS (7)
  1. MYFORTIC (MYCOPHENOLIC ACID) TABLET [Suspect]
     Indication: RENAL TRANSPLANT
     Route: 048
     Dates: start: 20100409
  2. MYFORTIC (MYCOPHENOLIC ACID) TABLET [Suspect]
     Indication: PROPHYLAXIS AGAINST TRANSPLANT REJECTION
     Route: 048
     Dates: start: 20100409
  3. PROGRAF (TACROLIMUS) [Suspect]
  4. PANCREASE [Suspect]
  5. NORVASC (AMLODIPINE BESILATE) [Suspect]
  6. LABETALOL (LABETALOL) [Suspect]
  7. FLEXERIL (CYCLOBENZAPRINE HYDROCHLORIDE) [Suspect]

REACTIONS (1)
  - Pancreatitis [None]
